FAERS Safety Report 18526899 (Version 2)
Quarter: 2020Q4

REPORT INFORMATION
  Report Type: Spontaneous
  Country: JP (occurrence: JP)
  Receive Date: 20201120
  Receipt Date: 20201222
  Transmission Date: 20210114
  Serious: Yes (Life-Threatening, Hospitalization, Other)
  Sender: FDA-Public Use
  Company Number: JP-ELI_LILLY_AND_COMPANY-JP202011003993

PATIENT
  Age: 24 Year
  Sex: Male
  Weight: 52 kg

DRUGS (6)
  1. HUMALOG [Suspect]
     Active Substance: INSULIN LISPRO
     Indication: TYPE 1 DIABETES MELLITUS
     Dosage: UNK
     Route: 058
  2. LANTUS [Suspect]
     Active Substance: INSULIN GLARGINE
     Indication: TYPE 1 DIABETES MELLITUS
     Dosage: UNK
     Route: 058
  3. GLUCOSE [Suspect]
     Active Substance: DEXTROSE
     Indication: HYPOGLYCAEMIA
     Dosage: UNK
     Route: 042
  4. HUMALOG [Suspect]
     Active Substance: INSULIN LISPRO
     Dosage: 2100 U, SINGLE
     Route: 058
     Dates: start: 20190528, end: 20190528
  5. LANTUS [Suspect]
     Active Substance: INSULIN GLARGINE
     Dosage: 3100 U, SINGLE
     Route: 058
     Dates: start: 20190528, end: 20190528
  6. REXULTI [Concomitant]
     Active Substance: BREXPIPRAZOLE
     Indication: SCHIZOPHRENIA
     Dosage: 2 MG, DAILY
     Route: 048
     Dates: end: 20190527

REACTIONS (5)
  - Liver disorder [Recovering/Resolving]
  - Hypoglycaemia [Recovering/Resolving]
  - Hepatomegaly [Recovering/Resolving]
  - Incorrect dose administered [Unknown]
  - Hallucination, auditory [Unknown]

NARRATIVE: CASE EVENT DATE: 201810
